FAERS Safety Report 8312741-4 (Version None)
Quarter: 2012Q2

REPORT INFORMATION
  Report Type: 
  Country: None (occurrence: None)
  Receive Date: 20120426
  Receipt Date: 20120419
  Transmission Date: 20120825
  Serious: No
  Sender: FDA-Public Use
  Company Number: US-BIOGENIDEC-2012BI013731

PATIENT
  Sex: Female

DRUGS (2)
  1. MEDICINE (NOS) [Concomitant]
     Indication: MEMORY IMPAIRMENT
  2. AVONEX [Suspect]
     Indication: MULTIPLE SCLEROSIS
     Route: 030

REACTIONS (3)
  - DIARRHOEA [None]
  - MEMORY IMPAIRMENT [None]
  - AMNESIA [None]
